FAERS Safety Report 25296447 (Version 3)
Quarter: 2025Q4

REPORT INFORMATION
  Report Type: Spontaneous
  Country: US (occurrence: US)
  Receive Date: 20250511
  Receipt Date: 20251231
  Transmission Date: 20260118
  Serious: No
  Sender: SANOFI AVENTIS
  Company Number: US-SA-2025SA133673

PATIENT
  Age: 42 Year
  Sex: Male

DRUGS (1)
  1. DUPIXENT [Suspect]
     Active Substance: DUPILUMAB
     Indication: Dermatitis atopic
     Dosage: 300 MG, QOW
     Route: 065
     Dates: start: 202503, end: 2025

REACTIONS (4)
  - Pyrexia [Unknown]
  - Chills [Unknown]
  - Respiratory tract infection [Unknown]
  - Nasal congestion [Unknown]

NARRATIVE: CASE EVENT DATE: 20250101
